FAERS Safety Report 24861177 (Version 1)
Quarter: 2025Q1

REPORT INFORMATION
  Report Type: Spontaneous
  Country: FR (occurrence: FR)
  Receive Date: 20250120
  Receipt Date: 20250120
  Transmission Date: 20250409
  Serious: Yes (Other)
  Sender: BRISTOL-MYERS SQUIBB COMPANY
  Company Number: FR-PFIZER INC-PV202500003179

PATIENT
  Age: 82 Year

DRUGS (2)
  1. AZTREONAM [Suspect]
     Active Substance: AZTREONAM
     Indication: Device related infection
  2. AVIBACTAM SODIUM\CEFTAZIDIME [Suspect]
     Active Substance: AVIBACTAM SODIUM\CEFTAZIDIME
     Indication: Device related infection

REACTIONS (1)
  - Renal failure [Recovered/Resolved]
